FAERS Safety Report 8164371-5 (Version None)
Quarter: 2012Q1

REPORT INFORMATION
  Report Type: 
  Country: None (occurrence: None)
  Receive Date: 20120224
  Receipt Date: 20120215
  Transmission Date: 20120608
  Serious: Yes (Hospitalization)
  Sender: FDA-Public Use
  Company Number: PHHY2012CH013208

PATIENT
  Age: 29 Year
  Sex: Female

DRUGS (7)
  1. HYDROXYCHLOROQUINE SULFATE [Suspect]
     Indication: SYSTEMIC LUPUS ERYTHEMATOSUS
     Dosage: 200 MG, QD
  2. PREDNISONE TAB [Suspect]
     Indication: SYSTEMIC LUPUS ERYTHEMATOSUS
     Dosage: AS NEEDED
  3. CYCLOPHOSPHAMIDE [Concomitant]
     Indication: SYSTEMIC LUPUS ERYTHEMATOSUS
     Dosage: 100 MG, QD
  4. PREDNISONE TAB [Suspect]
     Dosage: 30 MG, QD
  5. PREDNISONE TAB [Suspect]
     Dosage: 50 MG, QD
  6. PREDNISONE TAB [Suspect]
     Dosage: 50 MG, QD
  7. PREDNISONE TAB [Suspect]
     Dosage: 25 MG, QD

REACTIONS (10)
  - SYSTEMIC LUPUS ERYTHEMATOSUS [None]
  - PERICARDIAL EFFUSION [None]
  - PULMONARY ARTERIAL HYPERTENSION [None]
  - JOINT SWELLING [None]
  - FATIGUE [None]
  - BUTTERFLY RASH [None]
  - RIGHT VENTRICULAR SYSTOLIC PRESSURE INCREASED [None]
  - DYSPNOEA EXERTIONAL [None]
  - MATERNAL EXPOSURE DURING PREGNANCY [None]
  - NORMAL NEWBORN [None]
